FAERS Safety Report 19026889 (Version 1)
Quarter: 2021Q1

REPORT INFORMATION
  Report Type: Spontaneous
  Country: US (occurrence: US)
  Receive Date: 20210318
  Receipt Date: 20210318
  Transmission Date: 20210420
  Serious: No
  Sender: FDA-Public Use
  Company Number: US-CELGENEUS-USA-20210302518

PATIENT
  Age: 55 Year
  Sex: Female

DRUGS (1)
  1. ZEPOSIA [Suspect]
     Active Substance: OZANIMOD HYDROCHLORIDE
     Indication: MULTIPLE SCLEROSIS
     Dosage: .92 MILLIGRAM
     Route: 048
     Dates: start: 20210214

REACTIONS (9)
  - Speech disorder [Unknown]
  - Back pain [Unknown]
  - Dizziness [Unknown]
  - Urticaria [Unknown]
  - Blood pressure increased [Unknown]
  - Dyspnoea [Unknown]
  - Seborrhoeic dermatitis [Unknown]
  - Neck pain [Unknown]
  - Sight disability [Unknown]

NARRATIVE: CASE EVENT DATE: 20210303
